FAERS Safety Report 7021484-9 (Version None)
Quarter: 2010Q3

REPORT INFORMATION
  Report Type: 
  Country: None (occurrence: None)
  Receive Date: 20100929
  Receipt Date: 20100923
  Transmission Date: 20110219
  Serious: Yes (Death)
  Sender: FDA-Public Use
  Company Number: NL-MERCK-1009NLD00010

PATIENT
  Age: 84 Year
  Sex: Female

DRUGS (4)
  1. FOSAMAX [Suspect]
     Indication: OSTEOPOROTIC FRACTURE
     Route: 048
     Dates: start: 20100529
  2. CARBASPIRIN CALCIUM [Concomitant]
     Route: 048
  3. CITALOPRAM [Concomitant]
     Route: 048
     Dates: start: 20100531
  4. NADROPARIN CALCIUM [Concomitant]
     Route: 051
     Dates: start: 20100515

REACTIONS (2)
  - DEATH [None]
  - GASTROINTESTINAL HAEMORRHAGE [None]
